FAERS Safety Report 4805298-3 (Version None)
Quarter: 2005Q4

REPORT INFORMATION
  Report Type: 
  Country: None (occurrence: None)
  Receive Date: 20051020
  Receipt Date: 20050913
  Transmission Date: 20060501
  Serious: Yes (Hospitalization)
  Sender: FDA-Public Use
  Company Number: CH-MERCK-0509CHE00034

PATIENT
  Age: 65 Year
  Sex: Female

DRUGS (4)
  1. VIOXX [Suspect]
     Indication: OSTEOARTHRITIS
     Route: 048
     Dates: start: 20020101, end: 20040901
  2. ACETAMINOPHEN [Concomitant]
     Indication: OSTEOARTHRITIS
     Route: 048
     Dates: end: 20040901
  3. ACETAMINOPHEN [Concomitant]
     Route: 048
     Dates: start: 20040901
  4. DICLOFENAC SODIUM [Concomitant]
     Indication: OSTEOARTHRITIS
     Route: 048
     Dates: start: 20040901

REACTIONS (4)
  - BACK PAIN [None]
  - CARDIOVASCULAR DISORDER [None]
  - CHEST PAIN [None]
  - DYSPNOEA [None]
